FAERS Safety Report 4429766-1 (Version None)
Quarter: 2004Q3

REPORT INFORMATION
  Report Type: 
  Country: None (occurrence: None)
  Receive Date: 20040818
  Receipt Date: 20040818
  Transmission Date: 20050211
  Serious: Yes (Other)
  Sender: FDA-Public Use
  Company Number: None

PATIENT
  Sex: Female
  Weight: 81.6475 kg

DRUGS (16)
  1. REBIF [Suspect]
     Indication: MULTIPLE SCLEROSIS
     Dosage: ROUTE IS SUBUCTANEOUS
     Route: 058
     Dates: start: 20040327, end: 20040621
  2. ALLEGRA [Concomitant]
  3. ASPIRIN [Concomitant]
  4. INDOMETHACIN 25MG CAP [Concomitant]
  5. CAPTOPRIL [Concomitant]
  6. PROTONIX [Concomitant]
  7. SYNTHROID [Concomitant]
  8. COLACE [Concomitant]
  9. ATACAND [Concomitant]
  10. PREMARIN [Concomitant]
  11. XANAX [Concomitant]
  12. OCUVITE [Concomitant]
  13. PLATINOL [Concomitant]
  14. REFRESH EYE DROPS [Concomitant]
  15. EXTRA STRENGTH TYLENOL [Concomitant]
  16. ALLERGEN TESTING INJECTIONS [Concomitant]

REACTIONS (5)
  - ALOPECIA [None]
  - FUNGAL INFECTION [None]
  - INJECTION SITE ERYTHEMA [None]
  - RASH [None]
  - SKIN ULCER [None]
